FAERS Safety Report 7986418-9 (Version None)
Quarter: 2011Q4

REPORT INFORMATION
  Report Type: 
  Country: None (occurrence: None)
  Receive Date: 20111216
  Receipt Date: 20111205
  Transmission Date: 20120403
  Serious: Yes (Hospitalization)
  Sender: FDA-Public Use
  Company Number: US-ACTELION-A-NJ2011-57344

PATIENT

DRUGS (6)
  1. CARTIA XT [Concomitant]
  2. TRACLEER [Suspect]
     Indication: PULMONARY ARTERIAL HYPERTENSION
     Dosage: 62.5 MG, BID
     Route: 048
     Dates: start: 20021216, end: 20110401
  3. TRACLEER [Suspect]
     Dosage: UNK
     Route: 048
     Dates: start: 20110101
  4. TRAVATAN [Concomitant]
  5. COUMADIN [Suspect]
  6. SIMVASTATIN [Concomitant]

REACTIONS (8)
  - PYREXIA [None]
  - PROSTATOMEGALY [None]
  - BIOPSY PROSTATE [None]
  - EPIDIDYMITIS [None]
  - DYSURIA [None]
  - PROSTATITIS [None]
  - INTERNATIONAL NORMALISED RATIO ABNORMAL [None]
  - BLADDER CATHETERISATION [None]
